FAERS Safety Report 6344758-3 (Version None)
Quarter: 2009Q3

REPORT INFORMATION
  Report Type: 
  Country: None (occurrence: None)
  Receive Date: 20090904
  Receipt Date: 20090902
  Transmission Date: 20100115
  Serious: Yes (Hospitalization)
  Sender: FDA-Public Use
  Company Number: 1281CARBO09

PATIENT
  Sex: Female
  Weight: 56 kg

DRUGS (2)
  1. CARBOPLATIN [Suspect]
     Indication: OVARIAN CANCER METASTATIC
     Dosage: 545 MCG, IV
     Route: 042
  2. TEXOTERE [Concomitant]

REACTIONS (6)
  - BACK PAIN [None]
  - DRUG HYPERSENSITIVITY [None]
  - ERYTHEMA [None]
  - MUSCULOSKELETAL CHEST PAIN [None]
  - OEDEMA PERIPHERAL [None]
  - PRURITUS [None]
